FAERS Safety Report 14220381 (Version 2)
Quarter: 2021Q2

REPORT INFORMATION
  Report Type: Report from Study
  Country: US (occurrence: US)
  Receive Date: 20171124
  Receipt Date: 20210524
  Transmission Date: 20210716
  Serious: Yes (Hospitalization)
  Sender: FDA-Public Use
  Company Number: US-SHIRE-US201729631

PATIENT
  Age: 33 Year
  Sex: Female

DRUGS (7)
  1. PARATHYROID HORMONE [Suspect]
     Active Substance: PARATHYROID HORMONE
     Indication: POST PROCEDURAL HYPOPARATHYROIDISM
     Dosage: 50 MICROGRAM, QD
     Route: 058
     Dates: start: 20160511
  2. PARATHYROID HORMONE [Suspect]
     Active Substance: PARATHYROID HORMONE
     Indication: POST PROCEDURAL HYPOPARATHYROIDISM
     Dosage: 50 MICROGRAM, QD
     Route: 058
     Dates: start: 20160511
  3. CALCITRIOL. [Concomitant]
     Active Substance: CALCITRIOL
     Dosage: 0.5 MILLIGRAM, BID
     Route: 065
  4. CALCIUM CARBONATE. [Suspect]
     Active Substance: CALCIUM CARBONATE
     Indication: POST PROCEDURAL HYPOPARATHYROIDISM
     Dosage: 7?11 TABS, QD
     Route: 048
  5. CALCITRIOL. [Concomitant]
     Active Substance: CALCITRIOL
     Dosage: 0.25 MILLIGRAM, BID
     Route: 065
  6. PARATHYROID HORMONE [Suspect]
     Active Substance: PARATHYROID HORMONE
     Indication: POST PROCEDURAL HYPOPARATHYROIDISM
     Dosage: 50 MICROGRAM, QD
     Route: 058
     Dates: start: 20160511
  7. CALCIUM CARBONATE. [Suspect]
     Active Substance: CALCIUM CARBONATE
     Dosage: 600 MILLIGRAM, BID
     Route: 048

REACTIONS (6)
  - Back pain [Unknown]
  - Premature menopause [Unknown]
  - Hot flush [Unknown]
  - Dental caries [Unknown]
  - Hypocalcaemia [Unknown]
  - Recalled product [Unknown]

NARRATIVE: CASE EVENT DATE: 20170930
